FAERS Safety Report 6172560-4 (Version None)
Quarter: 2009Q2

REPORT INFORMATION
  Report Type: 
  Country: None (occurrence: None)
  Receive Date: 20090429
  Receipt Date: 20081017
  Transmission Date: 20091009
  Serious: No
  Sender: FDA-Public Use
  Company Number: US-BAUSCH-2008BL004465

PATIENT
  Age: 11 Year
  Sex: Female
  Weight: 54 kg

DRUGS (1)
  1. CYCLOPENTOLATE HYDROCHLORIDE [Suspect]
     Indication: MYDRIASIS
     Route: 047
     Dates: start: 20081015, end: 20081015

REACTIONS (1)
  - EYELID OEDEMA [None]
